FAERS Safety Report 4521228-6 (Version None)
Quarter: 2004Q4

REPORT INFORMATION
  Report Type: 
  Country: None (occurrence: None)
  Receive Date: 20041206
  Receipt Date: 20041119
  Transmission Date: 20050328
  Serious: Yes (Other)
  Sender: FDA-Public Use
  Company Number: 2004-BP-12204RO

PATIENT
  Age: 40 Year
  Sex: Male

DRUGS (10)
  1. METHADONE HCL [Suspect]
     Indication: DRUG THERAPY
     Dosage: 140 MG, PO
     Route: 048
  2. CLARITHROMYCIN [Suspect]
     Dosage: 1 G
  3. OLANZAPINE [Suspect]
     Dosage: 10 MG
  4. RITONAVIR [Suspect]
     Dosage: 200 MG
  5. ABACAVIR (ABACAVIR) [Concomitant]
  6. CEFTRIAXONE [Concomitant]
  7. FLURAZEPAM [Concomitant]
  8. LAMIVUDINE (LAMIVUDINE) [Concomitant]
  9. LOPINAVIR [Concomitant]
  10. LORAZEPAM [Concomitant]

REACTIONS (2)
  - DRUG INTERACTION [None]
  - ELECTROCARDIOGRAM QT CORRECTED INTERVAL PROLONGED [None]
